FAERS Safety Report 9410825 (Version 2)
Quarter: 2013Q3

REPORT INFORMATION
  Report Type: Spontaneous
  Country: AU (occurrence: AU)
  Receive Date: 20130719
  Receipt Date: 20130724
  Transmission Date: 20140515
  Serious: Yes (Hospitalization)
  Sender: FDA-Public Use
  Company Number: AU-PFIZER INC-2013201877

PATIENT
  Age: 64 Year
  Sex: Female

DRUGS (8)
  1. EPINEPHRINE [Suspect]
     Indication: SINUS TACHYCARDIA
     Dosage: UNK
     Route: 065
  2. ERYTHROMYCIN [Interacting]
     Dosage: 100 MG, UNK
     Route: 042
  3. DIGOXIN [Interacting]
     Indication: STRESS CARDIOMYOPATHY
     Dosage: 0.5 MG, SINGLE (0.5 MG, ONCE)
     Route: 042
  4. DIGOXIN [Interacting]
     Indication: CARDIOMYOPATHY
  5. AMIODARONE [Interacting]
     Indication: ATRIAL FIBRILLATION
     Dosage: 1200 MG, UNK
     Route: 042
  6. AMIODARONE [Interacting]
     Indication: CARDIOVERSION
  7. NORADRENALINE [Concomitant]
     Indication: SINUS TACHYCARDIA
     Dosage: UNK
  8. ESOMEPRAZOLE [Concomitant]
     Dosage: 40 MG, UNK

REACTIONS (5)
  - Drug interaction [Recovering/Resolving]
  - Toxicity to various agents [Recovering/Resolving]
  - Hyperkalaemia [Recovering/Resolving]
  - Atrial fibrillation [Recovering/Resolving]
  - Bradyarrhythmia [Recovering/Resolving]
